FAERS Safety Report 5511402-4 (Version None)
Quarter: 2007Q4

REPORT INFORMATION
  Report Type: 
  Country: None (occurrence: None)
  Receive Date: 20071109
  Receipt Date: 20071029
  Transmission Date: 20080405
  Serious: Yes (Death)
  Sender: FDA-Public Use
  Company Number: HN-ROCHE-518572

PATIENT
  Age: 88 Year
  Sex: Male
  Weight: 180 kg

DRUGS (1)
  1. BONIVA [Suspect]
     Indication: OSTEOPOROSIS
     Route: 048
     Dates: start: 20070625

REACTIONS (1)
  - MYOCARDIAL INFARCTION [None]
